FAERS Safety Report 4431834-5 (Version None)
Quarter: 2004Q3

REPORT INFORMATION
  Report Type: 
  Country: None (occurrence: None)
  Receive Date: 20040819
  Receipt Date: 20040805
  Transmission Date: 20050211
  Serious: Yes (Disabling)
  Sender: FDA-Public Use
  Company Number: 2004-BP-04723NB

PATIENT
  Age: 50 Year
  Sex: Female

DRUGS (3)
  1. MEXITIL [Suspect]
     Indication: VENTRICULAR EXTRASYSTOLES
     Dosage: 300 MG (100MG); PO
     Route: 048
     Dates: start: 20040523, end: 20040526
  2. RIZE (CLOTIAZEPAM) [Suspect]
     Indication: AUTONOMIC NERVOUS SYSTEM IMBALANCE
     Dosage: 20 MG (NR); PO
     Route: 048
     Dates: start: 19910827
  3. ALMARL (AROTINOLOL HYDROCHLORIDE) (TA) [Concomitant]

REACTIONS (1)
  - DEPERSONALISATION [None]
